FAERS Safety Report 23700397 (Version 4)
Quarter: 2024Q2

REPORT INFORMATION
  Report Type: Spontaneous
  Country: US (occurrence: US)
  Receive Date: 20240403
  Receipt Date: 20240506
  Transmission Date: 20240716
  Serious: No
  Sender: FDA-Public Use
  Company Number: US-ABBVIE-5700507

PATIENT
  Age: 19 Year
  Sex: Female

DRUGS (1)
  1. LILETTA [Suspect]
     Active Substance: LEVONORGESTREL
     Indication: Product used for unknown indication
     Dosage: TIME INTERVAL: AS NECESSARY: FORM STRENGTH WAS 52 MG (LEVONORGESTREL 52MG IUD )
     Route: 015
     Dates: start: 20240326, end: 20240326

REACTIONS (2)
  - Complication of device insertion [Unknown]
  - Procedural pain [Unknown]

NARRATIVE: CASE EVENT DATE: 20240326
